FAERS Safety Report 8470973-9 (Version None)
Quarter: 2012Q2

REPORT INFORMATION
  Report Type: 
  Country: None (occurrence: None)
  Receive Date: 20120627
  Receipt Date: 20120619
  Transmission Date: 20120825
  Serious: Yes (Other)
  Sender: FDA-Public Use
  Company Number: US-ASTRAZENECA-2012SE35472

PATIENT
  Age: 41 Year
  Sex: Female

DRUGS (1)
  1. SEROQUEL [Suspect]
     Route: 048

REACTIONS (4)
  - HOMICIDAL IDEATION [None]
  - DRUG DOSE OMISSION [None]
  - NOSOPHOBIA [None]
  - SUICIDAL IDEATION [None]
